FAERS Safety Report 26017455 (Version 3)
Quarter: 2025Q4

REPORT INFORMATION
  Report Type: Report from Study
  Country: JP (occurrence: JP)
  Receive Date: 20251110
  Receipt Date: 20251210
  Transmission Date: 20260117
  Serious: Yes (Hospitalization)
  Sender: UCB
  Company Number: JP-UCBJ-CD202511876UCBPHAPROD

PATIENT
  Age: 21 Year

DRUGS (2)
  1. ZILUCOPLAN [Suspect]
     Active Substance: ZILUCOPLAN
     Indication: Myasthenia gravis
     Dosage: UNK
  2. RYSTIGGO [ROZANOLIXIZUMAB] [Concomitant]
     Indication: Myasthenia gravis
     Dosage: UNK

REACTIONS (2)
  - Physical deconditioning [Unknown]
  - Oedema [Unknown]
